FAERS Safety Report 7927978-3 (Version None)
Quarter: 2011Q4

REPORT INFORMATION
  Report Type: 
  Country: None (occurrence: None)
  Receive Date: 20111118
  Receipt Date: 20111113
  Transmission Date: 20120403
  Serious: Yes (Other)
  Sender: FDA-Public Use
  Company Number: US-JNJFOC-20111107322

PATIENT
  Sex: Female

DRUGS (2)
  1. ZYRTEC [Suspect]
     Route: 048
  2. ZYRTEC [Suspect]
     Indication: PRODUCT USED FOR UNKNOWN INDICATION
     Route: 048
     Dates: start: 20110301

REACTIONS (2)
  - PRURITUS [None]
  - WITHDRAWAL SYNDROME [None]
